FAERS Safety Report 4943616-6 (Version None)
Quarter: 2006Q1

REPORT INFORMATION
  Report Type: 
  Country: None (occurrence: None)
  Receive Date: 20060310
  Receipt Date: 20060301
  Transmission Date: 20060701
  Serious: Yes (Other)
  Sender: FDA-Public Use
  Company Number: 2006031155

PATIENT
  Sex: Female

DRUGS (1)
  1. NORVASC [Suspect]
     Indication: ILL-DEFINED DISORDER
     Dosage: ORAL
     Route: 048
     Dates: start: 20051130

REACTIONS (6)
  - ANAEMIA [None]
  - HAEMORRHAGE [None]
  - RENAL FAILURE [None]
  - RENAL PAIN [None]
  - SCHIZOPHRENIA [None]
  - STOMATITIS [None]
